FAERS Safety Report 18880451 (Version 1)
Quarter: 2021Q1

REPORT INFORMATION
  Report Type: Report from Study
  Country: GB (occurrence: GB)
  Receive Date: 20210211
  Receipt Date: 20210211
  Transmission Date: 20210420
  Serious: Yes (Hospitalization)
  Sender: FDA-Public Use
  Company Number: GB-PFIZER INC-2021139284

PATIENT
  Age: 25 Year
  Sex: Female
  Weight: 56 kg

DRUGS (6)
  1. FLUOROURACIL. [Suspect]
     Active Substance: FLUOROURACIL
     Dosage: 3950 MG
     Route: 042
     Dates: start: 20180908
  2. FLUOROURACIL. [Suspect]
     Active Substance: FLUOROURACIL
     Indication: ADENOCARCINOMA GASTRIC
     Dosage: 3950 MG
     Route: 042
     Dates: start: 20180907
  3. OXALIPLATIN. [Suspect]
     Active Substance: OXALIPLATIN
     Indication: ADENOCARCINOMA GASTRIC
     Dosage: 135 MG
     Route: 042
     Dates: start: 20180907, end: 20180907
  4. DOCETAXEL. [Suspect]
     Active Substance: DOCETAXEL
     Indication: ADENOCARCINOMA GASTRIC
     Route: 042
     Dates: start: 20180907, end: 20180907
  5. CALCIUM FOLINATE [Suspect]
     Active Substance: LEUCOVORIN CALCIUM
     Indication: ADENOCARCINOMA GASTRIC
     Dosage: 300 MG
     Route: 042
     Dates: start: 20180907, end: 20180907
  6. AVELUMAB [Suspect]
     Active Substance: AVELUMAB
     Indication: ADENOCARCINOMA GASTRIC
     Dosage: 550 MG
     Route: 042
     Dates: start: 20180907, end: 20180907

REACTIONS (1)
  - ECG signs of myocardial ischaemia [Recovered/Resolved]

NARRATIVE: CASE EVENT DATE: 20180908
